FAERS Safety Report 25897811 (Version 2)
Quarter: 2025Q4

REPORT INFORMATION
  Report Type: Spontaneous
  Country: EG (occurrence: EG)
  Receive Date: 20251008
  Receipt Date: 20251017
  Transmission Date: 20260118
  Serious: Yes (Hospitalization)
  Sender: NOVO NORDISK
  Company Number: EG-NOVOPROD-1533734

PATIENT
  Age: 25 Year
  Sex: Female
  Weight: 65 kg

DRUGS (3)
  1. SAXENDA [Suspect]
     Active Substance: LIRAGLUTIDE
     Indication: Obesity
     Dosage: 0.6MG(STARTED LESS THAN A YEAR AGO)
     Route: 058
  2. SAXENDA [Suspect]
     Active Substance: LIRAGLUTIDE
     Dosage: UNK (RE-STARTED)
     Route: 058
  3. SAXENDA [Suspect]
     Active Substance: LIRAGLUTIDE
     Dosage: UNK(DOSE INCREASED)
     Route: 058

REACTIONS (2)
  - Vomiting [Recovered/Resolved]
  - Decreased appetite [Recovered/Resolved]
